FAERS Safety Report 5570338-3 (Version None)
Quarter: 2007Q4

REPORT INFORMATION
  Report Type: 
  Country: None (occurrence: None)
  Receive Date: 20071221
  Receipt Date: 20071212
  Transmission Date: 20080405
  Serious: Yes (Other)
  Sender: FDA-Public Use
  Company Number: PHFR2007GB03624

PATIENT

DRUGS (1)
  1. AREDIA [Suspect]
     Indication: HYPERCALCAEMIA OF MALIGNANCY
     Dosage: 60 MG/DAY
     Route: 065
     Dates: start: 20071210

REACTIONS (1)
  - BLOOD CALCIUM INCREASED [None]
